FAERS Safety Report 13831969 (Version 1)
Quarter: 2017Q3

REPORT INFORMATION
  Report Type: Spontaneous
  Country: US (occurrence: US)
  Receive Date: 20170803
  Receipt Date: 20170803
  Transmission Date: 20171127
  Serious: No
  Sender: FDA-Public Use
  Company Number: US-ROCHE-687338

PATIENT
  Sex: Female
  Weight: 54.1 kg

DRUGS (1)
  1. BONIVA [Suspect]
     Active Substance: IBANDRONATE SODIUM
     Indication: OSTEOPOROSIS
     Route: 048

REACTIONS (4)
  - Cough [Unknown]
  - Dysphagia [Unknown]
  - Oral discomfort [Unknown]
  - Oropharyngeal pain [Unknown]
